FAERS Safety Report 8446384-9 (Version None)
Quarter: 2012Q2

REPORT INFORMATION
  Report Type: 
  Country: None (occurrence: None)
  Receive Date: 20120618
  Receipt Date: 20120118
  Transmission Date: 20120825
  Serious: Yes (Other)
  Sender: FDA-Public Use
  Company Number: US-TEVA-2011005866

PATIENT
  Sex: Female
  Weight: 64.014 kg

DRUGS (2)
  1. TAMOXIFEN [Concomitant]
     Dates: start: 20030101, end: 20080101
  2. ACTIQ [Suspect]
     Indication: BREAST CANCER METASTATIC
     Route: 002
     Dates: start: 20050101

REACTIONS (3)
  - DENTAL CARIES [None]
  - TOOTH LOSS [None]
  - DRUG PRESCRIBING ERROR [None]
